FAERS Safety Report 8388119-4 (Version None)
Quarter: 2012Q2

REPORT INFORMATION
  Report Type: 
  Country: None (occurrence: None)
  Receive Date: 20120525
  Receipt Date: 20120517
  Transmission Date: 20120825
  Serious: Yes (Other)
  Sender: FDA-Public Use
  Company Number: JP-VERTEX PHARMACEUTICALS INC.-AE-2012-007596

PATIENT
  Age: 40 Year
  Sex: Female

DRUGS (10)
  1. PEG-INTRON [Concomitant]
     Route: 051
     Dates: start: 20120403, end: 20120403
  2. TELAVIC (TELAPREVIR) [Suspect]
     Indication: HEPATITIS C
     Route: 048
     Dates: start: 20120327, end: 20120425
  3. PEG-INTRON [Concomitant]
     Route: 051
     Dates: start: 20120410
  4. TELAVIC (TELAPREVIR) [Suspect]
     Route: 048
     Dates: start: 20120426
  5. PEG-INTRON [Concomitant]
     Indication: HEPATITIS C
     Route: 051
     Dates: start: 20120327, end: 20120327
  6. LAXOBERON [Concomitant]
     Route: 048
  7. RIBAVIRIN [Concomitant]
     Indication: HEPATITIS C
     Route: 048
     Dates: start: 20120327, end: 20120418
  8. RIBAVIRIN [Concomitant]
     Route: 048
     Dates: start: 20120419, end: 20120425
  9. RIBAVIRIN [Concomitant]
     Route: 048
     Dates: start: 20120426
  10. TSUMURA [Concomitant]
     Route: 048

REACTIONS (1)
  - NEUTROPHIL COUNT DECREASED [None]
